FAERS Safety Report 8612865-8 (Version None)
Quarter: 2012Q3

REPORT INFORMATION
  Report Type: 
  Country: None (occurrence: None)
  Receive Date: 20120822
  Receipt Date: 20110818
  Transmission Date: 20120928
  Serious: No
  Sender: FDA-Public Use
  Company Number: US-ASTRAZENECA-2011SE40309

PATIENT
  Age: 37 Year
  Sex: Female

DRUGS (1)
  1. SYMBICORT [Suspect]
     Route: 055

REACTIONS (7)
  - MALAISE [None]
  - DIZZINESS [None]
  - DRUG DOSE OMISSION [None]
  - NASOPHARYNGITIS [None]
  - DYSPNOEA [None]
  - BREATHING-RELATED SLEEP DISORDER [None]
  - ASTHMA [None]
